FAERS Safety Report 4477962-X (Version None)
Quarter: 2004Q4

REPORT INFORMATION
  Report Type: 
  Country: None (occurrence: None)
  Receive Date: 20041012
  Receipt Date: 20041001
  Transmission Date: 20050328
  Serious: No
  Sender: FDA-Public Use
  Company Number: AE04-03

PATIENT
  Sex: Female

DRUGS (3)
  1. VARICELLA-ZOSTER IMMUNE GLOBULIN (HUMAN) - VZIG [Suspect]
     Indication: IMMUNISATION
     Dates: start: 20020228
  2. HORMONE PILLS [Concomitant]
  3. CLARITIN [Concomitant]

REACTIONS (3)
  - LYME DISEASE [None]
  - MEDICATION ERROR [None]
  - NEUROPATHY [None]
